FAERS Safety Report 22073490 (Version 1)
Quarter: 2023Q1

REPORT INFORMATION
  Report Type: Spontaneous
  Country: FR (occurrence: FR)
  Receive Date: 20230308
  Receipt Date: 20230308
  Transmission Date: 20230418
  Serious: Yes (Other)
  Sender: FDA-Public Use
  Company Number: None

PATIENT
  Age: 15 Year
  Sex: Female

DRUGS (2)
  1. KETOPROFEN [Suspect]
     Active Substance: KETOPROFEN
     Indication: Arthralgia
     Dosage: UNK, NOT SPECIFIED DOSAGE
     Route: 048
     Dates: start: 201504, end: 201508
  2. CELEBREX [Suspect]
     Active Substance: CELECOXIB
     Indication: Polyarthritis
     Dosage: 100 MILLIGRAM
     Route: 048
     Dates: start: 2016

REACTIONS (1)
  - Asthma [Recovering/Resolving]
